FAERS Safety Report 14680567 (Version 3)
Quarter: 2018Q2

REPORT INFORMATION
  Report Type: Spontaneous
  Country: US (occurrence: US)
  Receive Date: 20180326
  Receipt Date: 20180514
  Transmission Date: 20180711
  Serious: Yes (Other)
  Sender: FDA-Public Use
  Company Number: US-GLAXOSMITHKLINE-US2018GSK048937

PATIENT
  Sex: Female

DRUGS (1)
  1. BENLYSTA [Suspect]
     Active Substance: BELIMUMAB
     Indication: SYSTEMIC LUPUS ERYTHEMATOSUS
     Dosage: 200 MG, WE
     Dates: start: 20171208

REACTIONS (6)
  - Ear disorder [Unknown]
  - Injection site pain [Unknown]
  - Urinary tract infection [Unknown]
  - Pain [Unknown]
  - Clostridium difficile infection [Unknown]
  - Pharyngitis streptococcal [Unknown]
